FAERS Safety Report 23075417 (Version 1)
Quarter: 2023Q4

REPORT INFORMATION
  Report Type: Spontaneous
  Country: US (occurrence: US)
  Receive Date: 20231017
  Receipt Date: 20231017
  Transmission Date: 20240110
  Serious: No
  Sender: FDA-Public Use
  Company Number: US-SANOFI-01798608

PATIENT
  Age: 34 Year
  Sex: Male

DRUGS (1)
  1. LANTUS [Suspect]
     Active Substance: INSULIN GLARGINE
     Indication: Diabetes mellitus
     Dosage: 13 IU, BID (13 UNITS BID AND DRUG TREATMENT DURATION:NEW PEN + 180 UNITS LEFT )

REACTIONS (1)
  - Inappropriate schedule of product administration [Unknown]
